FAERS Safety Report 7457024-X (Version None)
Quarter: 2011Q1

REPORT INFORMATION
  Report Type: 
  Country: None (occurrence: None)
  Receive Date: 20110302
  Receipt Date: 20101215
  Transmission Date: 20110831
  Serious: No
  Sender: FDA-Public Use
  Company Number: 023842

PATIENT
  Sex: Female
  Weight: 74 kg

DRUGS (3)
  1. CIMZIA [Suspect]
     Indication: CROHN'S DISEASE
     Dosage: (400 MG 1X/4 WEEKS SUBCUTANEOUS)
     Route: 058
     Dates: start: 20090512
  2. FLONASE [Concomitant]
  3. ALLEGRA [Concomitant]

REACTIONS (2)
  - URINARY TRACT INFECTION [None]
  - URTICARIA [None]
